FAERS Safety Report 5164026-5 (Version None)
Quarter: 2006Q4

REPORT INFORMATION
  Report Type: 
  Country: None (occurrence: None)
  Receive Date: 20061204
  Receipt Date: 20061127
  Transmission Date: 20070319
  Serious: Yes (Hospitalization)
  Sender: FDA-Public Use
  Company Number: CH-BOEHRINGER INGELHEIM PHARMACEUTICALS, INC.-2006-DE-06272GD

PATIENT
  Age: 59 Year
  Sex: Female

DRUGS (7)
  1. SIFROL [Suspect]
     Indication: RESTLESS LEGS SYNDROME
  2. ZYPREXA [Suspect]
     Indication: SCHIZOAFFECTIVE DISORDER
     Dosage: DOSE UNCHANGED FOR OVER 2 YEARS
  3. FLUOXETINE [Suspect]
     Indication: SCHIZOAFFECTIVE DISORDER
     Dosage: RECENT DOSE INCREASE
  4. REMERON [Suspect]
     Indication: SCHIZOAFFECTIVE DISORDER
     Dosage: DOSE UNCHANGED FOR OVER 2 YEARS
  5. VISKEN [Suspect]
     Indication: SCHIZOAFFECTIVE DISORDER
     Dosage: DOSE UNCHANGED FOR OVER 2 YEARS
  6. DEMETRIN [Suspect]
     Indication: SCHIZOAFFECTIVE DISORDER
     Dosage: DOSE UNCHANGED FOR OVER 2 YEARS
  7. DEPAKENE [Suspect]
     Indication: SCHIZOAFFECTIVE DISORDER
     Dosage: DOSE UNCHANGED FOR OVER 2 YEARS

REACTIONS (1)
  - PLEUROTHOTONUS [None]
